FAERS Safety Report 6543428-6 (Version None)
Quarter: 2010Q1

REPORT INFORMATION
  Report Type: 
  Country: None (occurrence: None)
  Receive Date: 20100120
  Receipt Date: 20091201
  Transmission Date: 20100710
  Serious: Yes (Death, Hospitalization)
  Sender: FDA-Public Use
  Company Number: A0755431A

PATIENT
  Age: 63 Year
  Sex: Male

DRUGS (17)
  1. AVANDIA [Suspect]
     Dosage: 4MG PER DAY
     Route: 048
     Dates: end: 20070101
  2. THEO-DUR [Concomitant]
  3. MOTRIN [Concomitant]
  4. FLOMAX [Concomitant]
  5. PROSCAR [Concomitant]
  6. ATROVENT [Concomitant]
  7. PROVENTIL [Concomitant]
  8. VALIUM [Concomitant]
  9. CELEXA [Concomitant]
  10. NEURONTIN [Concomitant]
  11. LASIX [Concomitant]
  12. LOTENSIN [Concomitant]
  13. UNIVASC [Concomitant]
  14. KDUR [Concomitant]
  15. BRETHINE [Concomitant]
  16. PRAVACHOL [Concomitant]
  17. OXYGEN [Concomitant]

REACTIONS (5)
  - ARRHYTHMIA [None]
  - CARDIAC FAILURE CONGESTIVE [None]
  - CARDIOPULMONARY FAILURE [None]
  - CORONARY ARTERY DISEASE [None]
  - HEART INJURY [None]
